FAERS Safety Report 6344770-4 (Version None)
Quarter: 2009Q3

REPORT INFORMATION
  Report Type: 
  Country: None (occurrence: None)
  Receive Date: 20090904
  Receipt Date: 20090831
  Transmission Date: 20100115
  Serious: Yes (Hospitalization)
  Sender: FDA-Public Use
  Company Number: TRP_06360_2009

PATIENT
  Sex: Male

DRUGS (3)
  1. RIBASPHERE [Suspect]
     Indication: HEPATITIS C
     Dosage: (800 MG, DAILY); DAILY), (400 MG, DAILY)
     Dates: start: 20090621, end: 20090101
  2. RIBASPHERE [Suspect]
     Indication: HEPATITIS C
     Dosage: (800 MG, DAILY); DAILY), (400 MG, DAILY)
     Dates: start: 20090101
  3. PEGASYS [Suspect]
     Indication: HEPATITIS C
     Dosage: (180 ?G 1X/WEEK)
     Dates: start: 20090621, end: 20090731

REACTIONS (6)
  - ASTHENIA [None]
  - DELUSION [None]
  - FEELING ABNORMAL [None]
  - HAEMOGLOBIN DECREASED [None]
  - MALAISE [None]
  - OROPHARYNGEAL PAIN [None]
